FAERS Safety Report 15367276 (Version 1)
Quarter: 2018Q3

REPORT INFORMATION
  Report Type: Spontaneous
  Country: CH (occurrence: CH)
  Receive Date: 20180910
  Receipt Date: 20180910
  Transmission Date: 20181010
  Serious: Yes (Hospitalization)
  Sender: FDA-Public Use
  Company Number: CH-SA-2018SA060906

PATIENT
  Age: 77 Year
  Sex: Male
  Weight: 80 kg

DRUGS (9)
  1. ALIROCUMAB PREFILLED PEN [Suspect]
     Active Substance: ALIROCUMAB
     Indication: DYSLIPIDAEMIA
     Dosage: UNK, QOW
     Route: 058
     Dates: start: 20161222
  2. NORVASC [Concomitant]
     Active Substance: AMLODIPINE BESYLATE
     Indication: CORONARY ARTERIAL STENT INSERTION
     Dosage: 10 MG
     Route: 048
  3. BELOC ZOK [Concomitant]
     Active Substance: METOPROLOL SUCCINATE
     Indication: CORONARY ARTERIAL STENT INSERTION
     Dosage: 50 MG
     Route: 048
  4. ENALAPRIL MALEATE AND HYDROCHLOROTHIAZIDE [Concomitant]
     Active Substance: ENALAPRIL MALEATE\HYDROCHLOROTHIAZIDE
     Indication: CORONARY ARTERIAL STENT INSERTION
     Route: 048
  5. PRALUENT [Suspect]
     Active Substance: ALIROCUMAB
     Indication: DYSLIPIDAEMIA
     Dosage: UNK UNK,UNK
     Route: 058
     Dates: start: 20161222
  6. PLAVIX [Concomitant]
     Active Substance: CLOPIDOGREL BISULFATE
     Indication: CORONARY ARTERIAL STENT INSERTION
     Dosage: 75 MG
     Route: 048
  7. ALIROCUMAB PREFILLED PEN [Suspect]
     Active Substance: ALIROCUMAB
     Dosage: UNK, QOW
     Route: 058
     Dates: start: 20170316
  8. ASPIRIN CARDIO [Concomitant]
     Active Substance: ASPIRIN
     Indication: CORONARY ARTERIAL STENT INSERTION
     Dosage: 100 MG
     Route: 048
  9. PRALUENT [Suspect]
     Active Substance: ALIROCUMAB
     Dosage: 150 UNK
     Route: 058
     Dates: start: 20170316

REACTIONS (3)
  - Rhinitis [Recovered/Resolved]
  - Myalgia [Recovered/Resolved]
  - Haematuria [Recovered/Resolved]

NARRATIVE: CASE EVENT DATE: 20170221
